FAERS Safety Report 8540799-6 (Version None)
Quarter: 2012Q3

REPORT INFORMATION
  Report Type: 
  Country: None (occurrence: None)
  Receive Date: 20120726
  Receipt Date: 20120718
  Transmission Date: 20120928
  Serious: Yes (Hospitalization, Other)
  Sender: FDA-Public Use
  Company Number: US-009507513-2010SP028437

PATIENT

DRUGS (2)
  1. NUVARING [Suspect]
     Indication: VAGINAL HAEMORRHAGE
  2. NUVARING [Suspect]
     Indication: CONTRACEPTION
     Dates: start: 20030101, end: 20061101

REACTIONS (15)
  - MOUTH ULCERATION [None]
  - HYPOAESTHESIA [None]
  - CYSTITIS [None]
  - URINARY TRACT INFECTION [None]
  - PULMONARY EMBOLISM [None]
  - GONORRHOEA [None]
  - ARTHRALGIA [None]
  - PARAESTHESIA [None]
  - CHLAMYDIAL INFECTION [None]
  - CERVICAL DYSPLASIA [None]
  - ACNE [None]
  - DEEP VEIN THROMBOSIS [None]
  - CONTUSION [None]
  - ROAD TRAFFIC ACCIDENT [None]
  - BACK PAIN [None]
